FAERS Safety Report 9266764 (Version 3)
Quarter: 2013Q3

REPORT INFORMATION
  Report Type: Spontaneous
  Country: JP (occurrence: JP)
  Receive Date: 20130502
  Receipt Date: 20130814
  Transmission Date: 20140515
  Serious: Yes (Hospitalization, Disabling, Other)
  Sender: FDA-Public Use
  Company Number: JP-PFIZER INC-2013135805

PATIENT
  Age: 59 Year
  Sex: Female
  Weight: 46 kg

DRUGS (21)
  1. ZOSYN [Suspect]
     Indication: PNEUMONIA BACTERIAL
     Dosage: 4.5 G, 3X/DAY
     Route: 041
     Dates: start: 20130313, end: 20130318
  2. PREDONINE [Concomitant]
     Indication: MYASTHENIA GRAVIS
     Dosage: 5 MG, 1X/DAY
     Route: 048
  3. TAKEPRON [Concomitant]
     Indication: PROPHYLAXIS AGAINST GASTROINTESTINAL ULCER
     Dosage: 15 MG, 1X/DAY
     Route: 048
  4. LIPITOR [Concomitant]
     Indication: DYSLIPIDAEMIA
     Dosage: 10 MG, 1X/DAY
     Route: 048
  5. ARTIST [Concomitant]
     Indication: HYPERTENSION
     Dosage: 10 MG, 1X/DAY
     Route: 048
     Dates: start: 2011
  6. BONALON 35MG [Concomitant]
     Indication: OSTEOPOROSIS
     Dosage: 35 MG, 1X/DAY
     Route: 048
  7. RENIVACE [Concomitant]
     Indication: HYPERTENSION
     Dosage: 2.5 MG, 1X/DAY
     Route: 048
     Dates: start: 2011
  8. ALDACTONE-A [Concomitant]
     Indication: CARDIAC FAILURE CHRONIC
  9. PONTAL [Concomitant]
     Indication: CHEST PAIN
     Dosage: 500 MG, 1X/DAY
     Route: 048
     Dates: start: 2011
  10. WARFARIN [Concomitant]
     Indication: VENOUS STENT INSERTION
     Dosage: 3 MG, 1X/DAY
     Route: 048
     Dates: start: 2011, end: 20130312
  11. LENDORMIN [Concomitant]
     Dosage: 0.25 MG, 1X/DAY
  12. TRAMAL [Concomitant]
     Indication: NON-CARDIAC CHEST PAIN
     Dosage: 75 MG, 1X/DAY
     Route: 048
     Dates: start: 201204
  13. ALLEGRA [Concomitant]
     Indication: SEASONAL ALLERGY
     Dosage: 120 MG, 1X/DAY
     Route: 048
     Dates: start: 20130306
  14. ERIZAS [Concomitant]
     Dosage: UNK
     Route: 048
     Dates: start: 20130306, end: 20130313
  15. NASONEX [Concomitant]
     Dosage: UNK
     Dates: start: 20120306, end: 20130313
  16. INTAL [Concomitant]
     Dosage: UNK
     Dates: start: 20130306, end: 20130313
  17. KAYTWO N [Concomitant]
     Indication: INTERNATIONAL NORMALISED RATIO INCREASED
     Dosage: 2.5 MG, 1X/DAY
     Route: 041
     Dates: start: 20130313, end: 20130313
  18. CRAVIT [Concomitant]
     Indication: PNEUMONIA BACTERIAL
     Dosage: 500 MG, 1X/DAY
     Route: 041
     Dates: start: 20130313, end: 20130319
  19. VENILON [Concomitant]
     Indication: BLOOD IMMUNOGLOBULIN G DECREASED
     Dosage: 5 G, 1X/DAY
     Route: 041
     Dates: start: 20130314, end: 20130317
  20. HEPARIN [Concomitant]
     Indication: VENOUS STENT INSERTION
     Dosage: UNK
     Route: 041
     Dates: start: 20130315, end: 20130315
  21. CAPSAICIN [Concomitant]
     Dosage: UNK
     Dates: start: 20130313

REACTIONS (6)
  - Hepatitis acute [Not Recovered/Not Resolved]
  - Pancreatitis acute [Recovering/Resolving]
  - Rash generalised [Recovering/Resolving]
  - Diarrhoea [Recovering/Resolving]
  - Laryngeal oedema [Recovering/Resolving]
  - Keratitis [Recovering/Resolving]
